FAERS Safety Report 21789888 (Version 2)
Quarter: 2023Q1

REPORT INFORMATION
  Report Type: Spontaneous
  Country: US (occurrence: US)
  Receive Date: 20221228
  Receipt Date: 20230120
  Transmission Date: 20230417
  Serious: Yes (Other)
  Sender: FDA-Public Use
  Company Number: US-PFIZER INC-202201393486

PATIENT
  Age: 60 Year
  Sex: Female
  Weight: 71.67 kg

DRUGS (1)
  1. PAXLOVID [Suspect]
     Active Substance: NIRMATRELVIR\RITONAVIR
     Indication: COVID-19 treatment
     Dosage: TWO NIRMATRELVIR 150MG AND ONE RITONAVIR 100MG, TWICE A DAY
     Route: 048
     Dates: start: 20221221

REACTIONS (4)
  - Haemorrhage [Unknown]
  - Constipation [Unknown]
  - Haemorrhoids [Unknown]
  - Haemorrhoidal haemorrhage [Unknown]

NARRATIVE: CASE EVENT DATE: 20221222
